FAERS Safety Report 8296110-1 (Version None)
Quarter: 2012Q2

REPORT INFORMATION
  Report Type: 
  Country: None (occurrence: None)
  Receive Date: 20120418
  Receipt Date: 20120409
  Transmission Date: 20120825
  Serious: Yes (Death, Hospitalization)
  Sender: FDA-Public Use
  Company Number: US-GLAXOSMITHKLINE-A0973840A

PATIENT
  Age: 68 Year
  Sex: Male

DRUGS (4)
  1. LANOXIN [Concomitant]
  2. SOTALOL HCL [Concomitant]
  3. FISH OIL [Concomitant]
  4. ARIXTRA [Suspect]
     Indication: DEEP VEIN THROMBOSIS
     Dosage: 10MG PER DAY
     Route: 058
     Dates: start: 20110607, end: 20111021

REACTIONS (6)
  - HYPERCOAGULATION [None]
  - DEATH [None]
  - CEREBRAL HAEMORRHAGE [None]
  - CONTUSION [None]
  - CEREBROVASCULAR ACCIDENT [None]
  - DRUG INEFFECTIVE [None]
